FAERS Safety Report 7800161-8 (Version None)
Quarter: 2011Q3

REPORT INFORMATION
  Report Type: 
  Country: None (occurrence: None)
  Receive Date: 20110901
  Receipt Date: 20110420
  Transmission Date: 20111222
  Serious: Yes (Disabling, Other)
  Sender: FDA-Public Use
  Company Number: 277904USA

PATIENT
  Sex: Female

DRUGS (2)
  1. METOCLOPRAMIDE [Suspect]
     Indication: GASTROINTESTINAL DISORDER
  2. METOCLOPRAMIDE [Suspect]
     Indication: GASTROINTESTINAL DISORDER

REACTIONS (2)
  - NERVOUS SYSTEM DISORDER [None]
  - EXTRAPYRAMIDAL DISORDER [None]
